FAERS Safety Report 9898445 (Version 1)
Quarter: 2014Q1

REPORT INFORMATION
  Report Type: Spontaneous
  Country: AR (occurrence: AR)
  Receive Date: 20140214
  Receipt Date: 20140214
  Transmission Date: 20141002
  Serious: Yes (Other)
  Sender: FDA-Public Use
  Company Number: AR-PFIZER INC-2014039703

PATIENT
  Age: 62 Year
  Sex: Female

DRUGS (1)
  1. GENOTROPIN [Suspect]
     Indication: POSTPARTUM HYPOPITUITARISM
     Dosage: 0.1 MG - 0.5 MG, 1X/DAY
     Dates: start: 20100607

REACTIONS (1)
  - Hypertension [Recovered/Resolved]
